FAERS Safety Report 4562845-7 (Version None)
Quarter: 2005Q1

REPORT INFORMATION
  Report Type: 
  Country: None (occurrence: None)
  Receive Date: 20050121
  Receipt Date: 20050111
  Transmission Date: 20050727
  Serious: Yes (Hospitalization)
  Sender: FDA-Public Use
  Company Number: 2004AP06063

PATIENT
  Age: 57 Year
  Sex: Female

DRUGS (2)
  1. NOLVADEX [Suspect]
     Indication: BREAST CANCER
     Dosage: 20 MG DAILY PO
     Route: 048
     Dates: start: 20041112, end: 20041126
  2. TAXOL [Concomitant]

REACTIONS (4)
  - BREAST CANCER FEMALE [None]
  - DISSEMINATED INTRAVASCULAR COAGULATION [None]
  - METASTASES TO PLEURA [None]
  - PLEURAL EFFUSION [None]
